FAERS Safety Report 16227498 (Version 1)
Quarter: 2019Q2

REPORT INFORMATION
  Report Type: Spontaneous
  Country: US (occurrence: US)
  Receive Date: 20190423
  Receipt Date: 20190423
  Transmission Date: 20190711
  Serious: Yes (Other)
  Sender: FDA-Public Use
  Company Number: US-BAYER-2019-080814

PATIENT
  Sex: Female

DRUGS (18)
  1. OMEPRAZOLE. [Concomitant]
     Active Substance: OMEPRAZOLE
     Dosage: 20 MG, QD
  2. FISH OIL [Concomitant]
     Active Substance: FISH OIL
     Dosage: 1200 MG
  3. MULTIVITAMIN [VITAMINS NOS] [Concomitant]
     Dosage: UNK UNK, QD
  4. ZEGERID OTC CAPSULES [Concomitant]
     Active Substance: OMEPRAZOLE\SODIUM BICARBONATE
     Dosage: 20 MG, QD
  5. PRESERVISION [Concomitant]
     Active Substance: MINERALS\VITAMINS
     Dosage: UNK
  6. LEFLUNOMIDE. [Concomitant]
     Active Substance: LEFLUNOMIDE
     Dosage: 10 MG, QD
  7. GABAPENTIN. [Concomitant]
     Active Substance: GABAPENTIN
     Dosage: 300 MG, HS
  8. XELJANZ [Concomitant]
     Active Substance: TOFACITINIB CITRATE
     Dosage: 11 MG
  9. AMLODIPINE [Concomitant]
     Active Substance: AMLODIPINE BESYLATE
     Dosage: 2.5 MG, QD
  10. GABAPENTIN. [Concomitant]
     Active Substance: GABAPENTIN
     Dosage: 100 MG, OM
  11. VITAMIN D3 [Concomitant]
     Active Substance: CHOLECALCIFEROL
     Dosage: UNK
  12. PREDNISONE. [Concomitant]
     Active Substance: PREDNISONE
     Dosage: 2 MG, QD
  13. ROSUVASTATIN. [Concomitant]
     Active Substance: ROSUVASTATIN
     Dosage: 20 MG
  14. ARIPIPRAZOLE. [Concomitant]
     Active Substance: ARIPIPRAZOLE
     Dosage: 2 MG
  15. CALCIUM ASCORBATE;VITAMIN B COMPLEX [Concomitant]
     Dosage: 600 MG
  16. BAYER ASPIRIN [Suspect]
     Active Substance: ASPIRIN
     Dosage: UNK
  17. GENISTEIN [Concomitant]
     Active Substance: GENISTEIN
     Dosage: 1.000 MG
  18. LISINOPRIL. [Concomitant]
     Active Substance: LISINOPRIL
     Dosage: 12.5 MG

REACTIONS (1)
  - Haematochezia [Recovered/Resolved]
